FAERS Safety Report 19532765 (Version 3)
Quarter: 2021Q4

REPORT INFORMATION
  Report Type: Spontaneous
  Country: FR (occurrence: FR)
  Receive Date: 20210713
  Receipt Date: 20211102
  Transmission Date: 20220303
  Serious: Yes (Hospitalization)
  Sender: FDA-Public Use
  Company Number: None

PATIENT
  Age: 37 Year
  Sex: Female
  Weight: 160 kg

DRUGS (5)
  1. NAPROXEN [Interacting]
     Active Substance: NAPROXEN
     Indication: Influenza like illness
     Dosage: UNK
     Route: 048
     Dates: start: 20210620, end: 20210620
  2. NAPROXEN [Interacting]
     Active Substance: NAPROXEN
     Indication: Influenza like illness
     Dosage: UNK
     Route: 048
     Dates: start: 20210623, end: 20210626
  3. PROZAC [Interacting]
     Active Substance: FLUOXETINE HYDROCHLORIDE
     Indication: Depression
     Dosage: 20 MG
     Route: 048
     Dates: start: 202102, end: 20210628
  4. MODERNA COVID-19 VACCINE [Suspect]
     Active Substance: CX-024414
     Indication: COVID-19 immunisation
     Dosage: UNK
     Route: 030
     Dates: start: 20210610, end: 20210610
  5. FLUOXETINE HYDROCHLORIDE [Interacting]
     Active Substance: FLUOXETINE HYDROCHLORIDE
     Indication: Depression
     Dosage: 20 MG, QD
     Route: 048
     Dates: start: 202102, end: 20210628

REACTIONS (1)
  - Spontaneous haematoma [Not Recovered/Not Resolved]

NARRATIVE: CASE EVENT DATE: 20210727
